FAERS Safety Report 5523218-3 (Version None)
Quarter: 2007Q4

REPORT INFORMATION
  Report Type: 
  Country: None (occurrence: None)
  Receive Date: 20071121
  Receipt Date: 20071116
  Transmission Date: 20080405
  Serious: Yes (Disabling)
  Sender: FDA-Public Use
  Company Number: ZA-BRISTOL-MYERS SQUIBB COMPANY-13949466

PATIENT
  Age: 80 Year
  Sex: Male

DRUGS (3)
  1. SINEMET [Suspect]
     Indication: PARKINSON'S DISEASE
     Dosage: DOSAGE FORM = TABLET. ON 15-NOV-2007 THE DOSE WAS INCREASED TO 6.5 TABLETS PER DAY.
     Route: 048
     Dates: end: 20071114
  2. SINEMET CR [Suspect]
     Indication: PARKINSON'S DISEASE
     Dosage: DOSAGE FORM = TABLET
     Route: 048
  3. PRAMIPEXOLE HCL [Concomitant]

REACTIONS (2)
  - PARALYSIS [None]
  - SPEECH DISORDER [None]
